FAERS Safety Report 9030432 (Version 1)
Quarter: 2013Q1

REPORT INFORMATION
  Report Type: Spontaneous
  Country: FR (occurrence: FR)
  Receive Date: 20130122
  Receipt Date: 20130122
  Transmission Date: 20140127
  Serious: Yes (Life-Threatening, Hospitalization)
  Sender: FDA-Public Use
  Company Number: FR-ASTRAZENECA-2013SE02566

PATIENT
  Age: 20767 Day
  Sex: Male

DRUGS (10)
  1. BRILIQUE [Suspect]
     Indication: ACUTE CORONARY SYNDROME
     Route: 050
     Dates: start: 20121228, end: 20121230
  2. KARDEGIC [Concomitant]
     Indication: ACUTE CORONARY SYNDROME
     Route: 048
  3. INEXIUM [Concomitant]
     Route: 048
  4. HEPARINE [Concomitant]
  5. ASPIRINE [Concomitant]
  6. LOVENOX [Concomitant]
  7. TAHOR [Concomitant]
  8. ACTRAPID [Concomitant]
  9. FENTANYL [Concomitant]
  10. HYPNOVEL [Concomitant]

REACTIONS (2)
  - Thrombosis in device [Recovered/Resolved with Sequelae]
  - Drug effect decreased [Recovered/Resolved with Sequelae]
